FAERS Safety Report 9183559 (Version 1)
Quarter: 2013Q1

REPORT INFORMATION
  Report Type: Spontaneous
  Country: US (occurrence: US)
  Receive Date: 20130322
  Receipt Date: 20130322
  Transmission Date: 20140127
  Serious: Yes (Other)
  Sender: FDA-Public Use
  Company Number: US-BRISTOL-MYERS SQUIBB COMPANY-16554966

PATIENT
  Age: 63 Year
  Sex: Male
  Weight: 92.51 kg

DRUGS (1)
  1. ERBITUX [Suspect]
     Indication: NEOPLASM MALIGNANT
     Dosage: ANOTHER INF:25APR12,528MG10APR,14APR,24APR,1MAY,8MAY,15MAY,22-MAY,12JUN
     Route: 042
     Dates: start: 20120404

REACTIONS (2)
  - Rash [Unknown]
  - Urticaria [Unknown]
